FAERS Safety Report 10925191 (Version 2)
Quarter: 2015Q2

REPORT INFORMATION
  Report Type: Spontaneous
  Country: US (occurrence: US)
  Receive Date: 20150318
  Receipt Date: 20150524
  Transmission Date: 20150821
  Serious: No
  Sender: FDA-Public Use
  Company Number: US-JNJFOC-20140101026

PATIENT
  Age: 71 Year
  Sex: Male
  Weight: 88.45 kg

DRUGS (3)
  1. NIZORAL A-D [Suspect]
     Active Substance: KETOCONAZOLE
     Indication: DANDRUFF
     Dosage: 1%, LEFT ON FOR 1 MINUTE AND RINSED, 1 TIME DAILY FOR 3 TIMES
     Route: 061
     Dates: start: 20131223, end: 20131226
  2. FISH OIL [Concomitant]
     Active Substance: FISH OIL
     Route: 065
  3. NIZORAL A-D [Suspect]
     Active Substance: KETOCONAZOLE
     Route: 061

REACTIONS (5)
  - Pruritus [Recovered/Resolved]
  - Skin exfoliation [Recovered/Resolved]
  - Burning sensation [Recovered/Resolved]
  - Sunburn [Recovered/Resolved]
  - Drug ineffective [Unknown]

NARRATIVE: CASE EVENT DATE: 20131223
